FAERS Safety Report 24602568 (Version 1)
Quarter: 2024Q4

REPORT INFORMATION
  Report Type: Spontaneous
  Country: US (occurrence: US)
  Receive Date: 20241111
  Receipt Date: 20241111
  Transmission Date: 20250115
  Serious: No
  Sender: TARO
  Company Number: US-TARO PHARMACEUTICALS USA INC.-2023TAR01340

PATIENT

DRUGS (1)
  1. DAPSONE [Suspect]
     Active Substance: DAPSONE
     Indication: Acne
     Dosage: UNK, QD
     Route: 003
     Dates: start: 202312

REACTIONS (2)
  - Application site irritation [Unknown]
  - Dry skin [Unknown]

NARRATIVE: CASE EVENT DATE: 20231201
